FAERS Safety Report 5364029-1 (Version None)
Quarter: 2007Q2

REPORT INFORMATION
  Report Type: 
  Country: None (occurrence: None)
  Receive Date: 20070620
  Receipt Date: 20070608
  Transmission Date: 20071010
  Serious: Yes (Hospitalization, Other)
  Sender: FDA-Public Use
  Company Number: IE-PFIZER INC-2007039210

PATIENT
  Sex: Female
  Weight: 50 kg

DRUGS (1)
  1. NEURONTIN [Suspect]
     Indication: MIGRAINE
     Route: 048
     Dates: start: 20021218, end: 20030127

REACTIONS (1)
  - ABORTION SPONTANEOUS [None]
